FAERS Safety Report 18207510 (Version 1)
Quarter: 2020Q3

REPORT INFORMATION
  Report Type: Spontaneous
  Country: DE (occurrence: DE)
  Receive Date: 20200828
  Receipt Date: 20200828
  Transmission Date: 20201103
  Serious: Yes (Death, Other)
  Sender: FDA-Public Use
  Company Number: DE-BRISTOL-MYERS SQUIBB COMPANY-BMS-2020-069413

PATIENT
  Age: 73 Year
  Sex: Male

DRUGS (12)
  1. DIHYDRALAZIN [Concomitant]
     Active Substance: DIHYDRALAZINE SULFATE
     Indication: HYPERTENSION
     Dosage: 80 MILLIGRAM DAILY
     Route: 042
     Dates: start: 20200820, end: 20200821
  2. AMPICILLIN [Concomitant]
     Active Substance: AMPICILLIN
     Indication: PNEUMONIA
     Dosage: 6 GRAM DAILY
     Route: 042
     Dates: start: 20200820, end: 20200821
  3. ATORVASTATIN [Concomitant]
     Active Substance: ATORVASTATIN
     Indication: HYPERTENSION
     Dosage: 20 MILLIGRAM DAILY
     Route: 048
     Dates: start: 20200820, end: 20200821
  4. INDAPAMID [Concomitant]
     Active Substance: INDAPAMIDE
     Indication: HYPERTENSION
     Dosage: 3 MILLIGRAM DAILY
     Route: 048
     Dates: start: 20200820, end: 20200821
  5. CLONIDIN [Concomitant]
     Active Substance: CLONIDINE
     Indication: DELIRIUM
     Dosage: 12 MILLIGRAM DAILY
     Route: 042
     Dates: start: 20200821, end: 20200821
  6. SULBACTAM [Concomitant]
     Active Substance: SULBACTAM
     Indication: PNEUMONIA
     Dosage: 3 GRAM DAILY
     Route: 042
     Dates: start: 20200820, end: 20200821
  7. METAMIZOL [Concomitant]
     Active Substance: METAMIZOLE SODIUM
     Indication: PAIN
     Dosage: 3 GRAM DAILY
     Route: 042
     Dates: start: 20200820, end: 20200821
  8. URAPIDIL [Concomitant]
     Active Substance: URAPIDIL
     Indication: HYPERTENSION
     Dosage: 800 MILLIGRAM DAILY
     Route: 042
     Dates: start: 20200820, end: 20200821
  9. CANDESARTAN. [Concomitant]
     Active Substance: CANDESARTAN
     Indication: HYPERTENSION
     Dosage: 64 MILLIGRAM DAILY
     Route: 048
     Dates: start: 20200820, end: 20200821
  10. METOPROLOL. [Concomitant]
     Active Substance: METOPROLOL
     Indication: HYPERTENSION
     Dosage: 200 MILLIGRAM DAILY
     Route: 048
     Dates: start: 20200820, end: 20200821
  11. APIXABAN [Suspect]
     Active Substance: APIXABAN
     Indication: PRODUCT USED FOR UNKNOWN INDICATION
     Dosage: 2.5 MILLIGRAM, BID
     Route: 065
     Dates: end: 20200819
  12. MELPERON [Concomitant]
     Active Substance: MELPERONE
     Indication: DELIRIUM
     Dosage: 25 MILLIGRAM DAILY
     Route: 048
     Dates: start: 20200820, end: 20200821

REACTIONS (2)
  - Haemorrhage intracranial [Unknown]
  - Respiratory failure [Fatal]

NARRATIVE: CASE EVENT DATE: 20200821
